FAERS Safety Report 6849554-6 (Version None)
Quarter: 2010Q3

REPORT INFORMATION
  Report Type: 
  Country: None (occurrence: None)
  Receive Date: 20100716
  Receipt Date: 20071001
  Transmission Date: 20110219
  Serious: No
  Sender: FDA-Public Use
  Company Number: US-PFIZER INC-2007083251

PATIENT
  Sex: Female
  Weight: 58.6 kg

DRUGS (2)
  1. CHANTIX [Suspect]
     Indication: SMOKING CESSATION THERAPY
     Dates: start: 20070924
  2. ALL OTHER THERAPEUTIC PRODUCTS [Concomitant]
     Indication: ARTHRITIS

REACTIONS (3)
  - DECREASED APPETITE [None]
  - DYSGEUSIA [None]
  - MALAISE [None]
